FAERS Safety Report 5836776-6 (Version None)
Quarter: 2008Q3

REPORT INFORMATION
  Report Type: 
  Country: None (occurrence: None)
  Receive Date: 20080807
  Receipt Date: 20080730
  Transmission Date: 20090109
  Serious: Yes (Other)
  Sender: FDA-Public Use
  Company Number: US-ASTRAZENECA-2008UW09997

PATIENT
  Age: 357 Month
  Sex: Female
  Weight: 93 kg

DRUGS (5)
  1. SEROQUEL [Suspect]
     Indication: SLEEP DISORDER
     Route: 048
     Dates: start: 20070101, end: 20070701
  2. SEROQUEL [Suspect]
     Indication: DEPRESSION
     Route: 048
     Dates: start: 20070101, end: 20070701
  3. PHEN-FEN [Concomitant]
     Dates: start: 19960101
  4. EFFEXOR XR [Concomitant]
     Dates: start: 20040101
  5. URSADIAL [Concomitant]
     Dates: start: 20080401

REACTIONS (5)
  - BLOOD CHOLESTEROL INCREASED [None]
  - GASTRIC BYPASS [None]
  - HYPERTENSION [None]
  - TYPE 2 DIABETES MELLITUS [None]
  - WEIGHT INCREASED [None]
